FAERS Safety Report 10409575 (Version 3)
Quarter: 2014Q4

REPORT INFORMATION
  Report Type: Spontaneous
  Country: US (occurrence: US)
  Receive Date: 20140826
  Receipt Date: 20141216
  Transmission Date: 20150528
  Serious: Yes (Death, Hospitalization)
  Sender: FDA-Public Use
  Company Number: US-PFIZER INC-2014235923

PATIENT
  Age: 43 Year
  Sex: Female
  Weight: 63 kg

DRUGS (4)
  1. ZOLPIDEM TARTRATE. [Suspect]
     Active Substance: ZOLPIDEM TARTRATE
     Dosage: 200 MG, UNK
  2. PROPANOLOL HCL [Suspect]
     Active Substance: PROPRANOLOL HYDROCHLORIDE
     Dosage: 12 G, UNK
  3. TRAMADOL HCL [Suspect]
     Active Substance: TRAMADOL HYDROCHLORIDE
     Dosage: 1.5 G, UNK
  4. ALPRAZOLAM. [Suspect]
     Active Substance: ALPRAZOLAM
     Dosage: 15 MG, UNK

REACTIONS (3)
  - Hypotension [Fatal]
  - Cardiac arrest [Fatal]
  - Intentional overdose [Fatal]
